FAERS Safety Report 9768026 (Version 1)
Quarter: 2013Q4

REPORT INFORMATION
  Report Type: Spontaneous
  Country: IT (occurrence: IT)
  Receive Date: 20131217
  Receipt Date: 20131217
  Transmission Date: 20140711
  Serious: Yes (Hospitalization)
  Sender: FDA-Public Use
  Company Number: IT-BAYER-2013-150725

PATIENT
  Age: 78 Year
  Sex: Male
  Weight: 60 kg

DRUGS (4)
  1. CARDIOASPIRIN [Suspect]
     Indication: PROPHYLAXIS
     Dosage: DAILY DOSE 1 DF
     Route: 048
     Dates: start: 20100101, end: 20130902
  2. ENALAPRIL [Concomitant]
     Dosage: DAILY DOSE 20 MG
     Route: 048
  3. AMLODIPINE [Concomitant]
     Dosage: DAILY DOSE 10 MG
     Route: 048
  4. DOMPERIDONE [Concomitant]
     Dosage: DAILY DOSE 1 DF
     Route: 048

REACTIONS (2)
  - Subdural haematoma [Recovering/Resolving]
  - Confusional state [Recovering/Resolving]
